FAERS Safety Report 6806696-9 (Version None)
Quarter: 2010Q2

REPORT INFORMATION
  Report Type: 
  Country: None (occurrence: None)
  Receive Date: 20100629
  Receipt Date: 20080410
  Transmission Date: 20101027
  Serious: No
  Sender: FDA-Public Use
  Company Number: US-PFIZER INC-2008029785

PATIENT
  Sex: Female
  Weight: 61.363 kg

DRUGS (8)
  1. XANAX [Suspect]
     Indication: ANXIETY
  2. LYRICA [Interacting]
     Indication: FIBROMYALGIA
     Dates: start: 20080101
  3. CYMBALTA [Interacting]
     Indication: DEPRESSION
     Dates: start: 20070101, end: 20080201
  4. ANAFRANIL [Concomitant]
     Indication: OBSESSIVE-COMPULSIVE DISORDER
  5. CALCIUM MEFOLINATE [Concomitant]
  6. ULTRAM [Concomitant]
     Indication: PAIN
  7. CONTRACEPTIVE, UNSPECIFIED [Concomitant]
  8. ANTIBIOTICS [Concomitant]

REACTIONS (6)
  - ANXIETY [None]
  - DRUG INEFFECTIVE [None]
  - DRUG INTERACTION [None]
  - PAIN [None]
  - PANIC REACTION [None]
  - UNEVALUABLE EVENT [None]
